FAERS Safety Report 13989207 (Version 1)
Quarter: 2017Q3

REPORT INFORMATION
  Report Type: Spontaneous
  Country: US (occurrence: None)
  Receive Date: 20170919
  Receipt Date: 20170919
  Transmission Date: 20171128
  Serious: No
  Sender: FDA-Public Use
  Company Number: None

PATIENT
  Age: 71 Year
  Sex: Female

DRUGS (1)
  1. ADEMPAS [Suspect]
     Active Substance: RIOCIGUAT
     Indication: PULMONARY EMBOLISM
     Route: 048
     Dates: start: 20170811

REACTIONS (4)
  - Nausea [None]
  - Decreased appetite [None]
  - Dizziness [None]
  - Therapy change [None]

NARRATIVE: CASE EVENT DATE: 20170919
